FAERS Safety Report 7736637-1 (Version None)
Quarter: 2011Q3

REPORT INFORMATION
  Report Type: 
  Country: None (occurrence: None)
  Receive Date: 20110902
  Receipt Date: 20110819
  Transmission Date: 20111222
  Serious: Yes (Hospitalization)
  Sender: FDA-Public Use
  Company Number: 2011MA012611

PATIENT
  Age: 64 Year
  Sex: Male

DRUGS (12)
  1. ENALAPRIL MALEATE [Suspect]
  2. PREGABALIN [Suspect]
  3. DIAZEPAM [Concomitant]
  4. LIRAGLUTIDE (NO PREF. NAME) [Suspect]
  5. CITALOPRAM HYDROBROMIDE [Suspect]
  6. INSULIN ASPART [Concomitant]
  7. THERALEN [Concomitant]
  8. ASPIRIN [Concomitant]
  9. ABILIFY [Suspect]
  10. METFORMIN HYDROCHLORIDE [Suspect]
  11. SIMVASTATIN [Concomitant]
  12. ANTABUSE [Concomitant]

REACTIONS (5)
  - SYNCOPE [None]
  - HYPOTENSION [None]
  - GAIT DISTURBANCE [None]
  - BALANCE DISORDER [None]
  - HYPOGLYCAEMIA [None]
